FAERS Safety Report 7962987-X (Version None)
Quarter: 2011Q4

REPORT INFORMATION
  Report Type: 
  Country: None (occurrence: None)
  Receive Date: 20111207
  Receipt Date: 20111128
  Transmission Date: 20120403
  Serious: Yes (Other)
  Sender: FDA-Public Use
  Company Number: US-ASTRAZENECA-2011SE61955

PATIENT
  Age: 35 Year
  Sex: Male
  Weight: 220 kg

DRUGS (24)
  1. OMEPRAZOLE [Concomitant]
  2. LISINOPRIL [Concomitant]
  3. CLONIDINE [Concomitant]
     Dosage: HALF TWICE A DAY
  4. TRAZODONE HCL [Concomitant]
  5. CALCITRIOL [Concomitant]
     Dosage: MONDAY WEDNESDAY FRIDAY
  6. SYMBICORT [Suspect]
     Indication: ASTHMA
     Dosage: TWO PUFFS BID
     Route: 055
     Dates: start: 20110906
  7. VENTOLIN [Concomitant]
     Dosage: TWO PUFFS EVERY 4-6 HOURS AS NEEDED
  8. OXYGEN THERAPY CPAP [Concomitant]
     Dosage: THREE LITRES AT NIGHT
  9. ATENOLOL [Concomitant]
  10. ALLOPURINOL [Concomitant]
  11. COLTHICINE [Concomitant]
     Dosage: TWO NOW AND ONE AN HOUR LATER
  12. FUROSEMIDE [Concomitant]
  13. NEUROLEX [Concomitant]
     Dosage: ONE TABLESPOON TWO TIMES A DAY
  14. FLUTICASONE PROPIONATE [Concomitant]
     Dosage: 50 MCGS OR 16 GMS
     Route: 045
  15. MIRTAZAPINE [Concomitant]
     Dosage: HALF AT NIGHT
  16. VITAMIN D [Concomitant]
     Dosage: 2000 DAILY
  17. ALBUTEROL [Concomitant]
     Dosage: THREE TIMES A DAY AS NEEDED
  18. AMLODIPINE [Concomitant]
  19. EFFEXOR [Concomitant]
  20. ACETAMINOPHEN [Concomitant]
  21. VENTOLIN [Concomitant]
     Dosage: TWO PUFFS EVERY 4-6 HOURS AS NEEDED
  22. OCEAN SPRAY OTC [Concomitant]
  23. VICODIN [Concomitant]
     Dosage: 5/325 MG ONE PILL EVERY EIGHT HOURS
  24. VITAMIN TAB [Concomitant]

REACTIONS (4)
  - DRUG DOSE OMISSION [None]
  - LOSS OF CONSCIOUSNESS [None]
  - RENAL DISORDER [None]
  - ANAEMIA [None]
